FAERS Safety Report 18430288 (Version 1)
Quarter: 2020Q4

REPORT INFORMATION
  Report Type: Report from Study
  Country: PL (occurrence: PL)
  Receive Date: 20201026
  Receipt Date: 20201026
  Transmission Date: 20210114
  Serious: Yes (Hospitalization)
  Sender: FDA-Public Use
  Company Number: PL-REGENERON PHARMACEUTICALS, INC.-2020-83195

PATIENT

DRUGS (11)
  1. KETONAL                            /00321701/ [Concomitant]
     Active Substance: KETOPROFEN
     Indication: SPINAL PAIN
     Dosage: 50 MG, BID
     Route: 048
     Dates: start: 20190130
  2. NOLIPREL BI FORTE [Concomitant]
     Indication: VENTRICULAR ARRHYTHMIA
     Dosage: 2.5 MG, QD
     Route: 048
     Dates: start: 2014
  3. ROSWERA [Concomitant]
     Active Substance: ROSUVASTATIN
     Indication: TYPE 2 DIABETES MELLITUS
     Dosage: 20 MG, QD
     Route: 048
     Dates: start: 2009
  4. PRAZOL                             /00661201/ [Concomitant]
     Indication: DIARRHOEA
     Dosage: 20 MG, BID
     Route: 048
     Dates: start: 20190515
  5. EUTHYROX [Concomitant]
     Active Substance: LEVOTHYROXINE SODIUM
     Indication: HYPOTHYROIDISM
     Dosage: 37.5 ?G, QD
     Route: 048
     Dates: start: 20190426
  6. CEMIPLIMAB [Suspect]
     Active Substance: CEMIPLIMAB
     Indication: LUNG ADENOCARCINOMA STAGE IV
     Dosage: 350 MG, Q3W
     Route: 042
     Dates: start: 20190109, end: 20200908
  7. GLUCOPHAGE [Concomitant]
     Active Substance: METFORMIN HYDROCHLORIDE
     Indication: TYPE 2 DIABETES MELLITUS
     Dosage: 1000 MG, TID
     Route: 048
     Dates: start: 2009
  8. DIAPREL [Concomitant]
     Active Substance: GLICLAZIDE
     Indication: TYPE 2 DIABETES MELLITUS
     Dosage: 15 MG, QD
     Route: 048
     Dates: start: 2009
  9. PARACETAMOL [Concomitant]
     Active Substance: ACETAMINOPHEN
     Indication: SPINAL PAIN
     Dosage: 500 MG, TID
     Route: 048
     Dates: start: 20190118
  10. BIOSOTAL [Concomitant]
     Indication: VENTRICULAR ARRHYTHMIA
     Dosage: 40 MG, TID
     Route: 048
     Dates: start: 2014
  11. VITRUM D3 FORTE [Concomitant]
     Indication: VITAMIN D DECREASED
     Dosage: 2000 J.M, QD
     Route: 048
     Dates: start: 20181001

REACTIONS (1)
  - Dermatitis [Recovered/Resolved]

NARRATIVE: CASE EVENT DATE: 20200921
